FAERS Safety Report 9232051 (Version 1)
Quarter: 2013Q2

REPORT INFORMATION
  Report Type: Spontaneous
  Country: US (occurrence: US)
  Receive Date: 20130415
  Receipt Date: 20130415
  Transmission Date: 20140414
  Serious: No
  Sender: FDA-Public Use
  Company Number: US-PFIZER INC-2013113512

PATIENT
  Sex: Male

DRUGS (2)
  1. QUILLIVANT XR [Suspect]
     Dosage: UNK
     Dates: start: 201303
  2. PEDIASURE [Suspect]
     Dosage: UNK

REACTIONS (3)
  - Dysphagia [Unknown]
  - Product taste abnormal [Unknown]
  - Dysgeusia [Unknown]
